FAERS Safety Report 9467300 (Version 1)
Quarter: 2013Q3

REPORT INFORMATION
  Report Type: Spontaneous
  Country: US (occurrence: US)
  Receive Date: 20130821
  Receipt Date: 20130821
  Transmission Date: 20140515
  Serious: No
  Sender: FDA-Public Use
  Company Number: US-BIOGENIDEC-2013BI078019

PATIENT
  Sex: Female

DRUGS (4)
  1. AVONEX [Suspect]
     Indication: MULTIPLE SCLEROSIS
     Route: 030
  2. AVONEX [Suspect]
     Indication: MULTIPLE SCLEROSIS
     Route: 030
     Dates: start: 20130729
  3. TECFIDERA [Concomitant]
     Indication: MULTIPLE SCLEROSIS
  4. TRAZODONE [Concomitant]

REACTIONS (2)
  - Injection site erythema [Unknown]
  - Anxiety [Unknown]
